FAERS Safety Report 16230661 (Version 8)
Quarter: 2020Q1

REPORT INFORMATION
  Report Type: Report from Study
  Country: US (occurrence: US)
  Receive Date: 20190423
  Receipt Date: 20200115
  Transmission Date: 20200409
  Serious: Yes (Death, Hospitalization, Other)
  Sender: FDA-Public Use
  Company Number: US-ACTELION-A-NJ2017-162311

PATIENT
  Age: 69 Year
  Sex: Female
  Weight: 49.89 kg

DRUGS (8)
  1. VELETRI [Suspect]
     Active Substance: EPOPROSTENOL
     Dosage: 24 NG/KG, PER MIN
     Route: 042
  2. VELETRI [Suspect]
     Active Substance: EPOPROSTENOL
     Dosage: 12 NG/KG, PER MIN
     Route: 042
  3. NIFEDIPINE. [Concomitant]
     Active Substance: NIFEDIPINE
  4. VELETRI [Suspect]
     Active Substance: EPOPROSTENOL
     Dosage: 76 NG/KG, PER MIN
     Route: 042
  5. VELETRI [Suspect]
     Active Substance: EPOPROSTENOL
     Dosage: 82 NG/KG, PER MIN
     Route: 042
  6. VELETRI [Suspect]
     Active Substance: EPOPROSTENOL
     Dosage: 20 NG/KG, PER MIN
     Route: 042
  7. VELETRI [Suspect]
     Active Substance: EPOPROSTENOL
     Indication: PULMONARY ARTERIAL HYPERTENSION
     Dosage: 84 NG/KG, PER MIN
     Route: 042
  8. ADCIRCA [Concomitant]
     Active Substance: TADALAFIL

REACTIONS (19)
  - Dyspnoea [Unknown]
  - Dry skin [Unknown]
  - Decreased appetite [Unknown]
  - Neoplasm malignant [Unknown]
  - Dyspnoea exertional [Unknown]
  - Respiratory distress [Unknown]
  - Lung neoplasm malignant [Not Recovered/Not Resolved]
  - Lip dry [Unknown]
  - Pneumonia [Unknown]
  - Pain in jaw [Unknown]
  - Pruritus [Unknown]
  - Catheter site erythema [Unknown]
  - Diarrhoea [Not Recovered/Not Resolved]
  - Vomiting [Unknown]
  - Cough [Unknown]
  - Headache [Unknown]
  - Nausea [Unknown]
  - Device malfunction [Unknown]
  - Death [Fatal]

NARRATIVE: CASE EVENT DATE: 20200105
